FAERS Safety Report 6963523-7 (Version None)
Quarter: 2010Q3

REPORT INFORMATION
  Report Type: 
  Country: None (occurrence: None)
  Receive Date: 20100823
  Receipt Date: 20100527
  Transmission Date: 20110219
  Serious: No
  Sender: FDA-Public Use
  Company Number: 012827

PATIENT
  Sex: Female
  Weight: 65.7 kg

DRUGS (8)
  1. CIMZIA [Suspect]
     Indication: CROHN'S DISEASE
     Dosage: (SUBCUTANEOUS, (200 MG 1X/2 WEEKS SUBCUTANEOUS), (400 MG 1X/3 WEEKS SUBCUTANEOUS)
     Route: 058
     Dates: start: 20090901, end: 20091201
  2. CIMZIA [Suspect]
     Indication: CROHN'S DISEASE
     Dosage: (SUBCUTANEOUS, (200 MG 1X/2 WEEKS SUBCUTANEOUS), (400 MG 1X/3 WEEKS SUBCUTANEOUS)
     Route: 058
     Dates: start: 20091201, end: 20100401
  3. CIMZIA [Suspect]
     Indication: CROHN'S DISEASE
     Dosage: (SUBCUTANEOUS, (200 MG 1X/2 WEEKS SUBCUTANEOUS), (400 MG 1X/3 WEEKS SUBCUTANEOUS)
     Route: 058
     Dates: start: 20100401
  4. PREDNISONE [Concomitant]
  5. BENTYL [Concomitant]
  6. LEXAPRO [Concomitant]
  7. WELLBUTRIN [Concomitant]
  8. CALCIUM [Concomitant]

REACTIONS (4)
  - CROHN'S DISEASE [None]
  - INAPPROPRIATE SCHEDULE OF DRUG ADMINISTRATION [None]
  - RASH MACULO-PAPULAR [None]
  - RASH PRURITIC [None]
